FAERS Safety Report 5556552-1 (Version None)
Quarter: 2007Q4

REPORT INFORMATION
  Report Type: 
  Country: None (occurrence: None)
  Receive Date: 20071130
  Receipt Date: 20070821
  Transmission Date: 20080405
  Serious: No
  Sender: FDA-Public Use
  Company Number: US200708004726

PATIENT
  Age: 52 Year
  Sex: Male

DRUGS (5)
  1. BYETTA [Suspect]
     Indication: TYPE 2 DIABETES MELLITUS
     Dosage: 10 UG, 2/D, SUBCUTANEOUS
     Route: 058
  2. LIPITOR [Concomitant]
  3. LISINOPRIL /USA/ (LISINOPRIL) [Concomitant]
  4. METAGLIP (GLIPIZIDE, METFORMIN HYDROCHLORIDE) [Concomitant]
  5. AVANDIA [Concomitant]

REACTIONS (6)
  - ABDOMINAL DISTENSION [None]
  - BLOOD GLUCOSE DECREASED [None]
  - BLOOD GLUCOSE INCREASED [None]
  - FEELING COLD [None]
  - NAUSEA [None]
  - SOMNOLENCE [None]
